FAERS Safety Report 9204990 (Version 1)
Quarter: 2013Q2

REPORT INFORMATION
  Report Type: Spontaneous
  Country: US (occurrence: None)
  Receive Date: 20130401
  Receipt Date: 20130401
  Transmission Date: 20140414
  Serious: Yes (Disabling)
  Sender: FDA-Public Use
  Company Number: None

PATIENT
  Age: 43 Year
  Sex: Female
  Weight: 95.26 kg

DRUGS (2)
  1. LYRICA [Suspect]
     Indication: FIBROMYALGIA
     Route: 048
     Dates: start: 20060116, end: 20120902
  2. LYRICA [Suspect]
     Indication: DIABETIC NEUROPATHY
     Route: 048
     Dates: start: 20060116, end: 20120902

REACTIONS (14)
  - Tremor [None]
  - Bradyphrenia [None]
  - Vaginal haemorrhage [None]
  - Speech disorder [None]
  - Dysphemia [None]
  - Speech disorder [None]
  - Amnesia [None]
  - Hallucination [None]
  - Dysphagia [None]
  - Insomnia [None]
  - Pain [None]
  - Coordination abnormal [None]
  - Suicidal ideation [None]
  - Communication disorder [None]
